FAERS Safety Report 20046857 (Version 1)
Quarter: 2021Q4

REPORT INFORMATION
  Report Type: Spontaneous
  Country: FR (occurrence: FR)
  Receive Date: 20211109
  Receipt Date: 20211109
  Transmission Date: 20220303
  Serious: Yes (Hospitalization)
  Sender: FDA-Public Use
  Company Number: FR-GSKCCFEMEA-Case-01344484_AE-51318

PATIENT
  Sex: Female

DRUGS (1)
  1. ALBUTEROL [Suspect]
     Active Substance: ALBUTEROL
     Indication: Product used for unknown indication
     Dosage: 100 UG

REACTIONS (5)
  - Hospitalisation [Unknown]
  - Condition aggravated [Unknown]
  - Product administration error [Unknown]
  - Emphysema [Unknown]
  - Product use issue [Unknown]
